FAERS Safety Report 14080826 (Version 1)
Quarter: 2017Q4

REPORT INFORMATION
  Report Type: Spontaneous
  Country: PK (occurrence: PK)
  Receive Date: 20171012
  Receipt Date: 20171012
  Transmission Date: 20180321
  Serious: Yes (Death, Hospitalization)
  Sender: FDA-Public Use
  Company Number: PK-FRESENIUS KABI-FK201708521

PATIENT
  Age: 24 Year
  Sex: Male

DRUGS (4)
  1. DAUNORUBICIN [Suspect]
     Active Substance: DAUNORUBICIN
     Indication: ACUTE MYELOID LEUKAEMIA
     Route: 040
  2. CYTARABINE (MANUFACTURER UNKNOWN) [Suspect]
     Active Substance: CYTARABINE
     Indication: ACUTE MYELOID LEUKAEMIA
     Route: 041
  3. IMATINIB [Suspect]
     Active Substance: IMATINIB
     Indication: ACUTE MYELOID LEUKAEMIA
     Route: 065
  4. CYTARABINE (MANUFACTURER UNKNOWN) [Suspect]
     Active Substance: CYTARABINE
     Route: 041

REACTIONS (1)
  - Febrile neutropenia [Recovered/Resolved]
